FAERS Safety Report 25705502 (Version 1)
Quarter: 2025Q3

REPORT INFORMATION
  Report Type: Spontaneous
  Country: US (occurrence: US)
  Receive Date: 20250820
  Receipt Date: 20250820
  Transmission Date: 20251020
  Serious: No
  Sender: MYLAN
  Company Number: US-MYLANLABS-2025M1068659

PATIENT
  Age: 52 Year
  Sex: Male

DRUGS (44)
  1. SERTRALINE [Suspect]
     Active Substance: SERTRALINE HYDROCHLORIDE
     Indication: Product used for unknown indication
  2. SERTRALINE [Suspect]
     Active Substance: SERTRALINE HYDROCHLORIDE
     Route: 065
  3. SERTRALINE [Suspect]
     Active Substance: SERTRALINE HYDROCHLORIDE
     Route: 065
  4. SERTRALINE [Suspect]
     Active Substance: SERTRALINE HYDROCHLORIDE
  5. AYVAKIT [Suspect]
     Active Substance: AVAPRITINIB
     Indication: Indolent systemic mastocytosis
     Dosage: 25 MILLIGRAM, QD (1 PER 1 DAY)
     Dates: start: 20250316
  6. AYVAKIT [Suspect]
     Active Substance: AVAPRITINIB
     Indication: Systemic mastocytosis
     Dosage: 25 MILLIGRAM, QD (1 PER 1 DAY)
     Dates: start: 20250316
  7. AYVAKIT [Suspect]
     Active Substance: AVAPRITINIB
     Dosage: 25 MILLIGRAM, QD (1 PER 1 DAY)
     Route: 048
     Dates: start: 20250316
  8. AYVAKIT [Suspect]
     Active Substance: AVAPRITINIB
     Dosage: 25 MILLIGRAM, QD (1 PER 1 DAY)
     Route: 048
     Dates: start: 20250316
  9. AYVAKIT [Suspect]
     Active Substance: AVAPRITINIB
  10. AYVAKIT [Suspect]
     Active Substance: AVAPRITINIB
  11. AYVAKIT [Suspect]
     Active Substance: AVAPRITINIB
     Route: 065
  12. AYVAKIT [Suspect]
     Active Substance: AVAPRITINIB
     Route: 065
  13. AYVAKIT [Suspect]
     Active Substance: AVAPRITINIB
     Dosage: 25 MILLIGRAM, QD (1 PER 1 DAY)
     Dates: start: 20250627
  14. AYVAKIT [Suspect]
     Active Substance: AVAPRITINIB
     Dosage: 25 MILLIGRAM, QD (1 PER 1 DAY)
     Route: 065
     Dates: start: 20250627
  15. AYVAKIT [Suspect]
     Active Substance: AVAPRITINIB
     Dosage: 25 MILLIGRAM, QD (1 PER 1 DAY)
     Dates: start: 20250627
  16. AYVAKIT [Suspect]
     Active Substance: AVAPRITINIB
     Dosage: 25 MILLIGRAM, QD (1 PER 1 DAY)
     Route: 065
     Dates: start: 20250627
  17. FARXIGA [Concomitant]
     Active Substance: DAPAGLIFLOZIN PROPANEDIOL
     Indication: Product used for unknown indication
  18. FARXIGA [Concomitant]
     Active Substance: DAPAGLIFLOZIN PROPANEDIOL
     Route: 065
  19. FARXIGA [Concomitant]
     Active Substance: DAPAGLIFLOZIN PROPANEDIOL
     Route: 065
  20. FARXIGA [Concomitant]
     Active Substance: DAPAGLIFLOZIN PROPANEDIOL
  21. CANNABIS SATIVA SUBSP. INDICA TOP [Concomitant]
     Active Substance: CANNABIS SATIVA SUBSP. INDICA TOP
     Indication: Product used for unknown indication
  22. CANNABIS SATIVA SUBSP. INDICA TOP [Concomitant]
     Active Substance: CANNABIS SATIVA SUBSP. INDICA TOP
     Route: 065
  23. CANNABIS SATIVA SUBSP. INDICA TOP [Concomitant]
     Active Substance: CANNABIS SATIVA SUBSP. INDICA TOP
     Route: 065
  24. CANNABIS SATIVA SUBSP. INDICA TOP [Concomitant]
     Active Substance: CANNABIS SATIVA SUBSP. INDICA TOP
  25. PROTONIX [Concomitant]
     Active Substance: PANTOPRAZOLE SODIUM
     Indication: Product used for unknown indication
  26. PROTONIX [Concomitant]
     Active Substance: PANTOPRAZOLE SODIUM
     Route: 065
  27. PROTONIX [Concomitant]
     Active Substance: PANTOPRAZOLE SODIUM
     Route: 065
  28. PROTONIX [Concomitant]
     Active Substance: PANTOPRAZOLE SODIUM
  29. TESTOSTERONE [Concomitant]
     Active Substance: TESTOSTERONE
     Indication: Product used for unknown indication
  30. TESTOSTERONE [Concomitant]
     Active Substance: TESTOSTERONE
     Route: 065
  31. TESTOSTERONE [Concomitant]
     Active Substance: TESTOSTERONE
     Route: 065
  32. TESTOSTERONE [Concomitant]
     Active Substance: TESTOSTERONE
  33. PANTOPRAZOLE [Concomitant]
     Active Substance: PANTOPRAZOLE
     Indication: Product used for unknown indication
  34. PANTOPRAZOLE [Concomitant]
     Active Substance: PANTOPRAZOLE
     Route: 065
  35. PANTOPRAZOLE [Concomitant]
     Active Substance: PANTOPRAZOLE
     Route: 065
  36. PANTOPRAZOLE [Concomitant]
     Active Substance: PANTOPRAZOLE
  37. EPIPEN [Concomitant]
     Active Substance: EPINEPHRINE
     Indication: Product used for unknown indication
  38. EPIPEN [Concomitant]
     Active Substance: EPINEPHRINE
     Route: 065
  39. EPIPEN [Concomitant]
     Active Substance: EPINEPHRINE
     Route: 065
  40. EPIPEN [Concomitant]
     Active Substance: EPINEPHRINE
  41. LEVOTHYROXINE [Concomitant]
     Active Substance: LEVOTHYROXINE
     Indication: Product used for unknown indication
  42. LEVOTHYROXINE [Concomitant]
     Active Substance: LEVOTHYROXINE
     Route: 065
  43. LEVOTHYROXINE [Concomitant]
     Active Substance: LEVOTHYROXINE
     Route: 065
  44. LEVOTHYROXINE [Concomitant]
     Active Substance: LEVOTHYROXINE

REACTIONS (12)
  - Brain fog [Not Recovered/Not Resolved]
  - Memory impairment [Not Recovered/Not Resolved]
  - Presyncope [Not Recovered/Not Resolved]
  - Productive cough [Unknown]
  - Nausea [Not Recovered/Not Resolved]
  - Headache [Not Recovered/Not Resolved]
  - Fatigue [Not Recovered/Not Resolved]
  - Confusional state [Not Recovered/Not Resolved]
  - Diarrhoea [Not Recovered/Not Resolved]
  - Dizziness [Not Recovered/Not Resolved]
  - Depression [Unknown]
  - Photosensitivity reaction [Not Recovered/Not Resolved]
